FAERS Safety Report 10077333 (Version 2)
Quarter: 2014Q2

REPORT INFORMATION
  Report Type: Spontaneous
  Country: US (occurrence: US)
  Receive Date: 20140414
  Receipt Date: 20140414
  Transmission Date: 20141212
  Serious: No
  Sender: FDA-Public Use
  Company Number: US-BANPHARM-20131348

PATIENT
  Age: 65 Year
  Sex: Male
  Weight: 81.65 kg

DRUGS (4)
  1. ALEVE LIQUID GELS 220 MG [Suspect]
     Indication: MYALGIA
     Dosage: PRN,
     Route: 048
     Dates: start: 201305
  2. BLOOD PRESSURE MEDICATION [Concomitant]
  3. DIABETES MEDICATION [Concomitant]
  4. BAYER ASPIRIN 325 MG [Concomitant]

REACTIONS (2)
  - Drug ineffective [Unknown]
  - Drug effect incomplete [Unknown]
